FAERS Safety Report 9255188 (Version 1)
Quarter: 2013Q2

REPORT INFORMATION
  Report Type: Spontaneous
  Country: DE (occurrence: DE)
  Receive Date: 20130425
  Receipt Date: 20130425
  Transmission Date: 20140414
  Serious: Yes (Death, Hospitalization)
  Sender: FDA-Public Use
  Company Number: DE-JNJFOC-20130407999

PATIENT
  Age: 92 Year
  Sex: Female

DRUGS (2)
  1. RISPERDAL [Suspect]
     Indication: PRODUCT USED FOR UNKNOWN INDICATION
     Route: 048
     Dates: start: 20130107, end: 20130112
  2. FAVISTAN [Concomitant]
     Route: 048
     Dates: start: 20130110

REACTIONS (5)
  - Death [Fatal]
  - Fall [Unknown]
  - Pelvic fracture [Unknown]
  - Pyrexia [Unknown]
  - Cerebral atrophy [Unknown]
